FAERS Safety Report 8027933-1 (Version None)
Quarter: 2012Q1

REPORT INFORMATION
  Report Type: 
  Country: None (occurrence: None)
  Receive Date: 20120106
  Receipt Date: 20120104
  Transmission Date: 20120608
  Serious: Yes (Life-Threatening, Hospitalization)
  Sender: FDA-Public Use
  Company Number: US-B.I. PHARMACEUTICALS,INC./RIDGEFIELD-2012-BP-00216BP

PATIENT
  Sex: Male

DRUGS (12)
  1. CARVEDILOL [Concomitant]
  2. EPLERENONE [Concomitant]
  3. LYRICA [Concomitant]
  4. GABAPENTIN [Concomitant]
  5. LISINOPRIL [Concomitant]
  6. PRADAXA [Suspect]
     Indication: ATRIAL FIBRILLATION
     Dosage: 300 MG
     Route: 048
     Dates: end: 20111201
  7. GLYBURIDE AND METFORMIN HYDROCHLORIDE [Concomitant]
  8. LOVASTATIN [Concomitant]
  9. MECLIZINE [Concomitant]
  10. DIGOXIN [Concomitant]
  11. JANUVIA [Concomitant]
  12. FUROSEMIDE [Concomitant]

REACTIONS (7)
  - MELAENA [None]
  - HAEMORRHAGE [None]
  - ACTIVATED PARTIAL THROMBOPLASTIN TIME PROLONGED [None]
  - DIZZINESS [None]
  - VERTIGO [None]
  - HAEMOGLOBIN DECREASED [None]
  - FALL [None]
